FAERS Safety Report 22383206 (Version 2)
Quarter: 2023Q2

REPORT INFORMATION
  Report Type: Report from Study
  Country: US (occurrence: US)
  Receive Date: 20230530
  Receipt Date: 20230622
  Transmission Date: 20230722
  Serious: Yes (Hospitalization)
  Sender: FDA-Public Use
  Company Number: US-JNJFOC-20221216661

PATIENT
  Age: 45 Year
  Sex: Male
  Weight: 105 kg

DRUGS (6)
  1. EPOPROSTENOL SODIUM [Suspect]
     Active Substance: EPOPROSTENOL SODIUM
     Indication: Pulmonary arterial hypertension
     Route: 048
  2. EPOPROSTENOL SODIUM [Suspect]
     Active Substance: EPOPROSTENOL SODIUM
     Route: 048
  3. EPOPROSTENOL SODIUM [Suspect]
     Active Substance: EPOPROSTENOL SODIUM
     Route: 048
  4. BACTRIM [Suspect]
     Active Substance: SULFAMETHOXAZOLE\TRIMETHOPRIM
     Indication: Product used for unknown indication
     Route: 065
  5. TADALAFIL [Concomitant]
     Active Substance: TADALAFIL
  6. AMBRISENTAN [Concomitant]
     Active Substance: AMBRISENTAN

REACTIONS (14)
  - Liver transplant [Recovering/Resolving]
  - Gastric infection [Unknown]
  - Abdominal pain [Unknown]
  - Nausea [Unknown]
  - Vomiting [Unknown]
  - Pyrexia [Recovering/Resolving]
  - Incision site complication [Recovering/Resolving]
  - Post procedural infection [Recovering/Resolving]
  - Abscess [Recovering/Resolving]
  - Hospitalisation [Recovering/Resolving]
  - Central venous catheterisation [Unknown]
  - Scab [Unknown]
  - Product administration interrupted [Unknown]
  - Urticaria [Unknown]

NARRATIVE: CASE EVENT DATE: 20221201
